FAERS Safety Report 7271761-1 (Version None)
Quarter: 2011Q1

REPORT INFORMATION
  Report Type: 
  Country: None (occurrence: None)
  Receive Date: 20110203
  Receipt Date: 20110120
  Transmission Date: 20110831
  Serious: Yes (Hospitalization)
  Sender: FDA-Public Use
  Company Number: BF-RANBAXY-2010RR-38964

PATIENT
  Age: 21 Year
  Sex: Male

DRUGS (2)
  1. AMOXICILLIN [Suspect]
  2. PARACETAMOL [Suspect]

REACTIONS (1)
  - TOXIC EPIDERMAL NECROLYSIS [None]
